FAERS Safety Report 10208037 (Version 1)
Quarter: 2014Q2

REPORT INFORMATION
  Report Type: Spontaneous
  Country: US (occurrence: None)
  Receive Date: 20140527
  Receipt Date: 20140527
  Transmission Date: 20141212
  Serious: No
  Sender: FDA-Public Use
  Company Number: None

PATIENT
  Age: 24 Year
  Sex: Female

DRUGS (1)
  1. BACTRIM DS [Suspect]
     Indication: ACNE
     Dates: start: 20120807, end: 20120904

REACTIONS (12)
  - Drug-induced liver injury [None]
  - Pyrexia [None]
  - Drug eruption [None]
  - Rash maculo-papular [None]
  - Drug hypersensitivity [None]
  - Alanine aminotransferase increased [None]
  - Aspartate aminotransferase increased [None]
  - Blood alkaline phosphatase increased [None]
  - Blood bilirubin increased [None]
  - Swelling face [None]
  - Platelet count decreased [None]
  - Rash erythematous [None]
